FAERS Safety Report 4746005-2 (Version None)
Quarter: 2005Q3

REPORT INFORMATION
  Report Type: 
  Country: None (occurrence: None)
  Receive Date: 20050816
  Receipt Date: 20040930
  Transmission Date: 20060218
  Serious: Yes (Hospitalization)
  Sender: FDA-Public Use
  Company Number: US-KINGPHARMUSA00001-K200401497

PATIENT
  Sex: Female

DRUGS (3)
  1. DELESTROGEN [Suspect]
     Indication: PREGNANCY
     Dosage: LESS THAN 1 MG
     Dates: start: 20040807
  2. DELESTROGEN [Suspect]
     Dosage: LESS THAN 1 MG
     Dates: start: 20040812
  3. DELESTROGEN [Suspect]
     Dosage: LESS THAN 1 MG
     Dates: start: 20040815, end: 20040101

REACTIONS (3)
  - BLOOD PRESSURE INCREASED [None]
  - DRUG EXPOSURE DURING PREGNANCY [None]
  - PREGNANCY [None]
